FAERS Safety Report 4494529-8 (Version None)
Quarter: 2004Q4

REPORT INFORMATION
  Report Type: 
  Country: None (occurrence: None)
  Receive Date: 20041103
  Receipt Date: 20041020
  Transmission Date: 20050328
  Serious: Yes (Other)
  Sender: FDA-Public Use
  Company Number: 239123

PATIENT
  Sex: Female
  Weight: 4 kg

DRUGS (6)
  1. INSULIN ASPART [Suspect]
     Indication: DIABETES MELLITUS
     Dosage: 14 IU,QD,INTRAUTERINE:28 IU,QD,INTRAUTERINE:33 IU,QD,INTRAUTERINE:43 IU,QD,INTRAUTERINE:30 IU,QD,I
     Route: 064
     Dates: start: 20040123, end: 20040417
  2. INSULIN ASPART [Suspect]
     Indication: DIABETES MELLITUS
     Dosage: 14 IU,QD,INTRAUTERINE:28 IU,QD,INTRAUTERINE:33 IU,QD,INTRAUTERINE:43 IU,QD,INTRAUTERINE:30 IU,QD,I
     Route: 064
     Dates: start: 20040418, end: 20040501
  3. INSULIN ASPART [Suspect]
     Indication: DIABETES MELLITUS
     Dosage: 14 IU,QD,INTRAUTERINE:28 IU,QD,INTRAUTERINE:33 IU,QD,INTRAUTERINE:43 IU,QD,INTRAUTERINE:30 IU,QD,I
     Route: 064
     Dates: start: 20040502, end: 20040724
  4. INSULIN ASPART [Suspect]
     Indication: DIABETES MELLITUS
     Dosage: 14 IU,QD,INTRAUTERINE:28 IU,QD,INTRAUTERINE:33 IU,QD,INTRAUTERINE:43 IU,QD,INTRAUTERINE:30 IU,QD,I
     Route: 064
     Dates: start: 20040725, end: 20040808
  5. INSULIN ASPART [Suspect]
     Indication: DIABETES MELLITUS
     Dosage: 14 IU,QD,INTRAUTERINE:28 IU,QD,INTRAUTERINE:33 IU,QD,INTRAUTERINE:43 IU,QD,INTRAUTERINE:30 IU,QD,I
     Route: 064
     Dates: start: 20040809
  6. PROTAPHAN (INSULIN ISOPHANE, HUMAN BIOSYNTHETIC) [Concomitant]

REACTIONS (2)
  - DRUG EXPOSURE DURING PREGNANCY [None]
  - HYPOGLYCAEMIA NEONATAL [None]
